FAERS Safety Report 5411956-2 (Version None)
Quarter: 2007Q3

REPORT INFORMATION
  Report Type: 
  Country: None (occurrence: None)
  Receive Date: 20070810
  Receipt Date: 20070810
  Transmission Date: 20080115
  Serious: Yes (Hospitalization)
  Sender: FDA-Public Use
  Company Number: None

PATIENT
  Sex: Male
  Weight: 113 kg

DRUGS (2)
  1. TEMOZOLOMIDE [Suspect]
     Dosage: 1360 MG
  2. TEMOZOLOMIDE [Suspect]

REACTIONS (1)
  - CONFUSIONAL STATE [None]
